FAERS Safety Report 5785930-0 (Version None)
Quarter: 2008Q2

REPORT INFORMATION
  Report Type: 
  Country: None (occurrence: None)
  Receive Date: 20080620
  Receipt Date: 20080620
  Transmission Date: 20081010
  Serious: Yes (Other)
  Sender: FDA-Public Use
  Company Number: None

PATIENT
  Sex: Female
  Weight: 70 kg

DRUGS (1)
  1. TIGECYCLINE 50MG WYETH [Suspect]
     Indication: ABDOMINAL INFECTION
     Dosage: 50 MG Q 12 HOURS IV
     Route: 042
     Dates: start: 20080525, end: 20080616

REACTIONS (11)
  - ANOREXIA [None]
  - BLOOD ELECTROLYTES ABNORMAL [None]
  - DYSPNOEA [None]
  - HEPATIC ENZYME INCREASED [None]
  - HYPERBILIRUBINAEMIA [None]
  - IMPAIRED HEALING [None]
  - JAUNDICE [None]
  - NAUSEA [None]
  - OEDEMA [None]
  - THROMBOCYTOPENIA [None]
  - VOMITING [None]
